FAERS Safety Report 5354268-8 (Version None)
Quarter: 2007Q2

REPORT INFORMATION
  Report Type: 
  Country: None (occurrence: None)
  Receive Date: 20070521
  Receipt Date: 20070208
  Transmission Date: 20071010
  Serious: No
  Sender: FDA-Public Use
  Company Number: WAES 0702USA01242

PATIENT
  Age: 78 Year
  Sex: Female

DRUGS (9)
  1. JANUVIA [Suspect]
     Indication: DIABETES MELLITUS NON-INSULIN-DEPENDENT
     Dosage: 100 MG/DAILY/PO
     Route: 048
     Dates: start: 20070125, end: 20070208
  2. ALTACE [Concomitant]
  3. FORTAMET [Concomitant]
  4. GLUCOTROL [Concomitant]
  5. LASIX [Concomitant]
  6. LIPITOR [Concomitant]
  7. MICARDIS HCT [Concomitant]
  8. SECTRAL [Concomitant]
  9. SYNTHROID [Concomitant]

REACTIONS (1)
  - DIZZINESS [None]
